FAERS Safety Report 16385777 (Version 1)
Quarter: 2019Q2

REPORT INFORMATION
  Report Type: Spontaneous
  Country: US (occurrence: US)
  Receive Date: 20190603
  Receipt Date: 20190603
  Transmission Date: 20190711
  Serious: Yes (Other)
  Sender: FDA-Public Use
  Company Number: US-CELGENEUS-USA-20190507827

PATIENT
  Sex: Female

DRUGS (4)
  1. OTEZLA [Suspect]
     Active Substance: APREMILAST
     Indication: PSORIASIS
     Dosage: 10 MILLIGRAM
     Route: 048
     Dates: start: 20190329
  2. OTEZLA [Suspect]
     Active Substance: APREMILAST
     Dosage: DOSE INCREASED
     Route: 048
     Dates: start: 201904
  3. OTEZLA [Suspect]
     Active Substance: APREMILAST
     Dosage: 15 MILLIGRAM
     Route: 048
     Dates: start: 2019
  4. OTEZLA [Suspect]
     Active Substance: APREMILAST
     Dosage: 7.5 MILLIGRAM
     Route: 048
     Dates: start: 201905

REACTIONS (1)
  - Haematochezia [Recovered/Resolved]

NARRATIVE: CASE EVENT DATE: 20190404
